FAERS Safety Report 14918495 (Version 3)
Quarter: 2018Q2

REPORT INFORMATION
  Report Type: Spontaneous
  Country: CH (occurrence: CH)
  Receive Date: 20180521
  Receipt Date: 20180531
  Transmission Date: 20180711
  Serious: Yes (Hospitalization, Other)
  Sender: FDA-Public Use
  Company Number: CH-MALLINCKRODT-T201802014

PATIENT
  Age: 62 Year
  Sex: Male

DRUGS (4)
  1. UVADEX [Suspect]
     Active Substance: METHOXSALEN
     Indication: LUNG TRANSPLANT REJECTION
  2. UVADEX [Suspect]
     Active Substance: METHOXSALEN
     Indication: CHRONIC GRAFT VERSUS HOST DISEASE
     Dosage: UNKNOWN
     Route: 057
  3. HEPARIN [Concomitant]
     Active Substance: HEPARIN SODIUM
     Indication: PRODUCT USED FOR UNKNOWN INDICATION
     Dosage: 10000 IU
     Route: 065
  4. UVADEX [Suspect]
     Active Substance: METHOXSALEN
     Indication: OBLITERATIVE BRONCHIOLITIS

REACTIONS (3)
  - Device related infection [Unknown]
  - Product use in unapproved indication [Unknown]
  - Venous thrombosis [Unknown]
